FAERS Safety Report 23361006 (Version 4)
Quarter: 2024Q2

REPORT INFORMATION
  Report Type: Spontaneous
  Country: US (occurrence: US)
  Receive Date: 20240103
  Receipt Date: 20240514
  Transmission Date: 20240716
  Serious: Yes (Death, Other)
  Sender: FDA-Public Use
  Company Number: US-CHIESI-2023CHF07036

PATIENT
  Age: 66 Year
  Sex: Male

DRUGS (1)
  1. ELFABRIO [Suspect]
     Active Substance: PEGUNIGALSIDASE ALFA-IWXJ
     Indication: Fabry^s disease
     Dosage: 75 MILLIGRAM, QOW
     Route: 042
     Dates: start: 2023

REACTIONS (14)
  - Death [Fatal]
  - Cardiac failure [Not Recovered/Not Resolved]
  - Immunodeficiency [Unknown]
  - Dysstasia [Recovered/Resolved]
  - Hepatic cirrhosis [Unknown]
  - Gait disturbance [Recovered/Resolved]
  - Asthenia [Unknown]
  - Inadequate diet [Unknown]
  - Swelling [Unknown]
  - Hypernatraemia [Unknown]
  - Weight increased [Recovered/Resolved]
  - Cellulitis [Recovering/Resolving]
  - Oedema [Unknown]
  - Jaundice [Unknown]

NARRATIVE: CASE EVENT DATE: 20231211
